FAERS Safety Report 6426425-0 (Version None)
Quarter: 2009Q4

REPORT INFORMATION
  Report Type: 
  Country: None (occurrence: None)
  Receive Date: 20091104
  Receipt Date: 20091022
  Transmission Date: 20100525
  Serious: Yes (Other)
  Sender: FDA-Public Use
  Company Number: PHHY2009PL42122

PATIENT
  Age: 22 Year
  Sex: Female

DRUGS (3)
  1. METOPROLOL [Suspect]
     Dosage: 75 MG/ DAY
  2. METOPROLOL [Suspect]
     Dosage: 200 MG/ DAY
  3. METOPROLOL [Suspect]
     Dosage: 50 MG/ DAY

REACTIONS (7)
  - DRUG EXPOSURE DURING PREGNANCY [None]
  - IMPLANTABLE DEFIBRILLATOR INSERTION [None]
  - LOSS OF CONSCIOUSNESS [None]
  - SYNCOPE [None]
  - TORSADE DE POINTES [None]
  - VENTRICULAR EXTRASYSTOLES [None]
  - VENTRICULAR TACHYCARDIA [None]
